FAERS Safety Report 11831745 (Version 3)
Quarter: 2015Q4

REPORT INFORMATION
  Report Type: Spontaneous
  Country: GH (occurrence: GH)
  Receive Date: 20151214
  Receipt Date: 20151223
  Transmission Date: 20160305
  Serious: Yes (Death, Other)
  Sender: FDA-Public Use
  Company Number: GH-PFIZER INC-2015419539

PATIENT
  Age: 27 Year
  Sex: Female

DRUGS (8)
  1. SYNTOCINON [Concomitant]
     Active Substance: OXYTOCIN
     Indication: MUSCLE CONTRACTIONS INVOLUNTARY
     Dosage: 10 IU, UNK
  2. THIOPENTONE [Concomitant]
     Active Substance: THIOPENTAL SODIUM
     Indication: GENERAL ANAESTHESIA
     Dosage: 450 MG, UNK
  3. TRANEXAMIC ACID. [Suspect]
     Active Substance: TRANEXAMIC ACID
     Indication: CAESAREAN SECTION
     Dosage: 200 MG, UNK
     Route: 037
  4. SUXAMETHONIUM [Concomitant]
     Active Substance: SUCCINYLCHOLINE
     Indication: GENERAL ANAESTHESIA
     Dosage: 100 MG, UNK
  5. FENTANYL. [Concomitant]
     Active Substance: FENTANYL
     Indication: ANALGESIC THERAPY
     Dosage: 100 UG, UNK
  6. THIOPENTONE [Concomitant]
     Active Substance: THIOPENTAL SODIUM
     Indication: SEIZURE
  7. AUGMENTIN [Concomitant]
     Active Substance: AMOXICILLIN\CLAVULANATE POTASSIUM
     Dosage: 1.2 G, UNK
  8. TRANEXAMIC ACID. [Suspect]
     Active Substance: TRANEXAMIC ACID
     Indication: LOCAL ANAESTHESIA

REACTIONS (11)
  - Wrong drug administered [Fatal]
  - Death [Fatal]
  - Ventricular fibrillation [Unknown]
  - Tachyarrhythmia [Unknown]
  - Hypertension [Unknown]
  - Coma scale abnormal [Unknown]
  - Cardiac arrest [Unknown]
  - Product packaging confusion [Fatal]
  - Seizure [Unknown]
  - Ventricular tachycardia [Unknown]
  - Myoclonus [Unknown]
